FAERS Safety Report 11142849 (Version 1)
Quarter: 2015Q2

REPORT INFORMATION
  Report Type: Spontaneous
  Country: DK (occurrence: DK)
  Receive Date: 20150528
  Receipt Date: 20150528
  Transmission Date: 20150821
  Serious: Yes (Hospitalization)
  Sender: FDA-Public Use
  Company Number: DK-JNJFOC-20150517540

PATIENT
  Age: 76 Year
  Sex: Female
  Weight: 63 kg

DRUGS (3)
  1. BRENTAN [Suspect]
     Active Substance: HYDROCORTISONE\MICONAZOLE
     Route: 048
  2. MAREVAN [Interacting]
     Active Substance: WARFARIN SODIUM
     Indication: ANTICOAGULANT THERAPY
     Route: 065
  3. BRENTAN [Suspect]
     Active Substance: HYDROCORTISONE\MICONAZOLE
     Indication: ORAL CANDIDIASIS
     Route: 048
     Dates: start: 20150408, end: 20150415

REACTIONS (2)
  - International normalised ratio fluctuation [Recovered/Resolved]
  - Drug interaction [Recovered/Resolved]

NARRATIVE: CASE EVENT DATE: 20150415
